FAERS Safety Report 9918468 (Version 2)
Quarter: 2014Q1

REPORT INFORMATION
  Report Type: Spontaneous
  Country: US (occurrence: US)
  Receive Date: 20140224
  Receipt Date: 20140312
  Transmission Date: 20141002
  Serious: No
  Sender: FDA-Public Use
  Company Number: US-BIOGENIDEC-2014BI011258

PATIENT
  Age: 42 Year
  Sex: Female

DRUGS (14)
  1. TECFIDERA [Suspect]
     Indication: MULTIPLE SCLEROSIS
  2. TECFIDERA [Suspect]
     Indication: MULTIPLE SCLEROSIS
  3. TECFIDERA [Suspect]
     Indication: MULTIPLE SCLEROSIS
  4. TECFIDERA [Suspect]
     Indication: MULTIPLE SCLEROSIS
     Route: 048
     Dates: start: 201401
  5. TECFIDERA [Suspect]
     Indication: MULTIPLE SCLEROSIS
  6. PANTOPRAZOLE [Concomitant]
  7. CAMRESE [Concomitant]
  8. TOPIRAMATE [Concomitant]
  9. SERTRALINE HCL [Concomitant]
  10. ADVIL [Concomitant]
  11. SM VITAMIN B12 [Concomitant]
  12. BONE DENSITY CALCIUM + D [Concomitant]
  13. TYLENOL 8 HOUR [Concomitant]
  14. VITAMIN D3 [Concomitant]

REACTIONS (8)
  - Asthenia [Unknown]
  - Diarrhoea [Recovered/Resolved]
  - Nausea [Not Recovered/Not Resolved]
  - Pruritus [Not Recovered/Not Resolved]
  - Flushing [Not Recovered/Not Resolved]
  - Erythema [Not Recovered/Not Resolved]
  - Dyspepsia [Unknown]
  - Vomiting [Recovered/Resolved]
